FAERS Safety Report 7048551-8 (Version None)
Quarter: 2010Q4

REPORT INFORMATION
  Report Type: 
  Country: None (occurrence: None)
  Receive Date: 20101008
  Receipt Date: 20100923
  Transmission Date: 20110411
  Serious: Yes (Other)
  Sender: FDA-Public Use
  Company Number: 2010P1001269

PATIENT
  Age: 27 Year
  Sex: Male
  Weight: 68.0396 kg

DRUGS (3)
  1. CARBAMAZEPINE EXTENDED RELEASE TABLETS USP 400MG (NO PREF. NAME) [Suspect]
     Indication: EPILEPSY
     Dosage: 1200 MG;QD;PO ; 800  MG;QD;PO
     Route: 048
  2. MULTI-VITAMIN [Concomitant]
  3. PREV MEDS [Concomitant]

REACTIONS (4)
  - ANTICONVULSANT DRUG LEVEL BELOW THERAPEUTIC [None]
  - DRUG DOSE OMISSION [None]
  - GRAND MAL CONVULSION [None]
  - TREATMENT NONCOMPLIANCE [None]
